FAERS Safety Report 8462534-2 (Version None)
Quarter: 2012Q2

REPORT INFORMATION
  Report Type: 
  Country: None (occurrence: None)
  Receive Date: 20120625
  Receipt Date: 20120611
  Transmission Date: 20120825
  Serious: No
  Sender: FDA-Public Use
  Company Number: US-ROXANE LABORATORIES, INC.-2012-RO-01414RO

PATIENT
  Sex: Male

DRUGS (3)
  1. CELEBREX [Concomitant]
     Indication: ARTHRITIS
  2. METHADONE HCL [Suspect]
     Indication: BACK PAIN
     Dosage: 30 MG
     Route: 048
     Dates: start: 20120604
  3. TIZANIDINE HYDROCHLORIDE [Concomitant]
     Indication: BACK PAIN

REACTIONS (4)
  - WITHDRAWAL SYNDROME [None]
  - DIARRHOEA [None]
  - PRODUCT TAMPERING [None]
  - RHINORRHOEA [None]
